FAERS Safety Report 24845584 (Version 1)
Quarter: 2025Q1

REPORT INFORMATION
  Report Type: Report from Study
  Country: US (occurrence: US)
  Receive Date: 20250115
  Receipt Date: 20250115
  Transmission Date: 20250409
  Serious: Yes (Hospitalization)
  Sender: AMGEN
  Company Number: US-AMGEN-USASL2025006145

PATIENT
  Age: 67 Year
  Sex: Male

DRUGS (1)
  1. KRYSTEXXA [Suspect]
     Active Substance: PEGLOTICASE
     Indication: Gouty tophus
     Dosage: 8 MILLIGRAM, Q2WK, EVERY 2 WEEKS
     Route: 065
     Dates: start: 20240815

REACTIONS (4)
  - Throat tightness [Unknown]
  - Chest discomfort [Unknown]
  - Skin discolouration [Unknown]
  - Infusion related hypersensitivity reaction [Unknown]
